FAERS Safety Report 17598926 (Version 1)
Quarter: 2020Q1

REPORT INFORMATION
  Report Type: Spontaneous
  Country: US (occurrence: US)
  Receive Date: 20200327
  Receipt Date: 20200327
  Transmission Date: 20200409
  Serious: No
  Sender: FDA-Public Use
  Company Number: None

PATIENT
  Sex: Male

DRUGS (1)
  1. TRUVADA [Suspect]
     Active Substance: EMTRICITABINE\TENOFOVIR DISOPROXIL FUMARATE
     Indication: HIGH RISK SEXUAL BEHAVIOUR
     Dosage: ?          OTHER DOSE:200/300MG;?
     Route: 048
     Dates: start: 20190305

REACTIONS (1)
  - Urinary retention [None]
